FAERS Safety Report 7601274-6 (Version None)
Quarter: 2011Q3

REPORT INFORMATION
  Report Type: 
  Country: None (occurrence: None)
  Receive Date: 20110711
  Receipt Date: 20110704
  Transmission Date: 20111222
  Serious: Yes (Hospitalization)
  Sender: FDA-Public Use
  Company Number: PHHY2011GB59050

PATIENT
  Age: 61 Year
  Sex: Female

DRUGS (7)
  1. ALENDRONIC ACID [Suspect]
     Indication: OSTEOPOROSIS PROPHYLAXIS
     Dosage: 70 MG,
     Route: 048
     Dates: start: 20110114, end: 20110616
  2. AZULFIDINE [Concomitant]
     Dosage: 1 G, BID
     Route: 048
  3. CALCICHEW D3 [Concomitant]
     Dosage: 1 DF, BID
     Route: 048
  4. ACETAMINOPHEN WITH PROPOXYPHENE HCL TAB [Concomitant]
     Dosage: 2 DF, QID
     Route: 048
  5. MELOXICAM [Concomitant]
     Dosage: 15 MG, UNK
     Route: 048
  6. FOLIC ACID [Concomitant]
     Dosage: 5 MG,TWICE IN A WEEK
     Route: 048
  7. METHOTREXATE [Concomitant]
     Dosage: 10 MG, QW
     Route: 048

REACTIONS (1)
  - FEMUR FRACTURE [None]
